FAERS Safety Report 12242103 (Version 1)
Quarter: 2016Q2

REPORT INFORMATION
  Report Type: Report from Study
  Country: CA (occurrence: CA)
  Receive Date: 20160406
  Receipt Date: 20160406
  Transmission Date: 20160815
  Serious: Yes (Hospitalization, Other)
  Sender: FDA-Public Use
  Company Number: CA-BEH-2016061087

PATIENT
  Sex: Female

DRUGS (2)
  1. HIZENTRA [Suspect]
     Active Substance: HUMAN IMMUNOGLOBULIN G
     Indication: ADULT T-CELL LYMPHOMA/LEUKAEMIA
     Dosage: PUSH, ONGOING. ENROLLED IN PROGRAM 2012.
     Route: 058
  2. HIZENTRA [Suspect]
     Active Substance: HUMAN IMMUNOGLOBULIN G
     Indication: PRIMARY IMMUNODEFICIENCY SYNDROME
     Dosage: PUSH, ONGOING. ENROLLED IN PROGRAM 2012.
     Route: 058

REACTIONS (4)
  - Encephalitis [Unknown]
  - Splenomegaly [Unknown]
  - Amnesia [Unknown]
  - Neutropenia [Unknown]
